FAERS Safety Report 24302629 (Version 6)
Quarter: 2025Q1

REPORT INFORMATION
  Report Type: Spontaneous
  Country: US (occurrence: US)
  Receive Date: 20240910
  Receipt Date: 20250217
  Transmission Date: 20250409
  Serious: Yes (Other)
  Sender: PFIZER
  Company Number: US-PFIZER INC-PV202400118279

PATIENT
  Age: 87 Year
  Sex: Male
  Weight: 66.213 kg

DRUGS (4)
  1. LORBRENA [Suspect]
     Active Substance: LORLATINIB
     Indication: ALK gene rearrangement positive
     Dosage: 100 MG (1 TABLET), 1X/DAY
     Route: 048
     Dates: start: 20240809
  2. LORBRENA [Suspect]
     Active Substance: LORLATINIB
     Indication: Lung neoplasm malignant
     Dosage: 75 MG, DAILY (25MG, TAKE 3 TABLETS DAILY)
     Route: 048
  3. NGENLA [SOMATROGON] [Concomitant]
  4. BPLEX [Concomitant]

REACTIONS (1)
  - Hallucination [Recovered/Resolved]

NARRATIVE: CASE EVENT DATE: 20240802
